FAERS Safety Report 23737773 (Version 1)
Quarter: 2024Q2

REPORT INFORMATION
  Report Type: Spontaneous
  Country: CN (occurrence: CN)
  Receive Date: 20240412
  Receipt Date: 20240412
  Transmission Date: 20240715
  Serious: Yes (Other)
  Sender: FDA-Public Use
  Company Number: CN-002147023-NVSC2024CN077105

PATIENT
  Age: 3 Year
  Sex: Male
  Weight: 19 kg

DRUGS (1)
  1. CYCLOSPORINE [Suspect]
     Active Substance: CYCLOSPORINE
     Indication: Prophylaxis
     Dosage: 15 MG, QD (PUMP INJECTION)
     Route: 065
     Dates: start: 20240328, end: 20240401

REACTIONS (3)
  - Lower gastrointestinal haemorrhage [Recovering/Resolving]
  - Blood bilirubin increased [Recovering/Resolving]
  - Haematochezia [Recovering/Resolving]

NARRATIVE: CASE EVENT DATE: 20240331
